FAERS Safety Report 17929642 (Version 1)
Quarter: 2020Q2

REPORT INFORMATION
  Report Type: Spontaneous
  Country: US (occurrence: US)
  Receive Date: 20200623
  Receipt Date: 20200623
  Transmission Date: 20200714
  Serious: Yes (Death)
  Sender: FDA-Public Use
  Company Number: None

PATIENT
  Age: 58 Year
  Sex: Female
  Weight: 87.3 kg

DRUGS (8)
  1. DIPHENHYDRAMINE. [Concomitant]
     Active Substance: DIPHENHYDRAMINE
     Dates: start: 20200207, end: 20200207
  2. HYDROMORPHONE [Concomitant]
     Active Substance: HYDROMORPHONE
     Dates: start: 20200207, end: 20200207
  3. DEXTROSE 5% AND 0.45% SODIUM CHLORIDE [Concomitant]
     Dates: start: 20200205, end: 20200207
  4. DEXAMETHASONE. [Concomitant]
     Active Substance: DEXAMETHASONE
     Dates: start: 20200207, end: 20200207
  5. ACETAMINOPHEN. [Concomitant]
     Active Substance: ACETAMINOPHEN
     Dates: start: 20200207, end: 20200207
  6. RITUXIMAB. [Suspect]
     Active Substance: RITUXIMAB
     Indication: LYMPHOMA
     Dosage: ?          OTHER FREQUENCY:ONE TIME;?
     Route: 042
     Dates: start: 20200207, end: 20200207
  7. FAMOTIDINE. [Concomitant]
     Active Substance: FAMOTIDINE
     Dates: start: 20200207, end: 20200207
  8. HEPARIN [Concomitant]
     Active Substance: HEPARIN SODIUM
     Dates: start: 20200205, end: 20200207

REACTIONS (6)
  - Heart rate increased [None]
  - Cardio-respiratory arrest [None]
  - Ventricular fibrillation [None]
  - Body temperature increased [None]
  - Pulseless electrical activity [None]
  - Infusion related reaction [None]

NARRATIVE: CASE EVENT DATE: 20200207
